FAERS Safety Report 6618861-4 (Version None)
Quarter: 2010Q1

REPORT INFORMATION
  Report Type: 
  Country: None (occurrence: None)
  Receive Date: 20100305
  Receipt Date: 20100305
  Transmission Date: 20100710
  Serious: Yes (Hospitalization, Other)
  Sender: FDA-Public Use
  Company Number: None

PATIENT
  Age: 20 Year
  Sex: Male
  Weight: 72.5755 kg

DRUGS (1)
  1. ADDERALL XR 15 [Suspect]

REACTIONS (4)
  - HEADACHE [None]
  - PAIN [None]
  - PRODUCT QUALITY ISSUE [None]
  - VOMITING [None]
